FAERS Safety Report 14264984 (Version 2)
Quarter: 2018Q2

REPORT INFORMATION
  Report Type: Report from Study
  Country: US (occurrence: US)
  Receive Date: 20171208
  Receipt Date: 20180410
  Transmission Date: 20180711
  Serious: No
  Sender: FDA-Public Use
  Company Number: PHEH2017US039436

PATIENT
  Sex: Female

DRUGS (1)
  1. COSENTYX [Suspect]
     Active Substance: SECUKINUMAB
     Indication: PRODUCT USED FOR UNKNOWN INDICATION
     Route: 065

REACTIONS (8)
  - Pain in extremity [Unknown]
  - Psoriatic arthropathy [Unknown]
  - Neck pain [Unknown]
  - Pain [Unknown]
  - Injection site pain [Unknown]
  - Speech disorder [Unknown]
  - Photosensitivity reaction [Unknown]
  - Rash [Unknown]
